FAERS Safety Report 11154793 (Version 1)
Quarter: 2015Q2

REPORT INFORMATION
  Report Type: Spontaneous
  Country: US (occurrence: None)
  Receive Date: 20150529
  Receipt Date: 20150529
  Transmission Date: 20150821
  Serious: Yes (Other)
  Sender: FDA-Public Use
  Company Number: 2015050043

PATIENT
  Age: 37 Year
  Sex: Female
  Weight: 67.13 kg

DRUGS (2)
  1. FELBATOL [Suspect]
     Active Substance: FELBAMATE
     Indication: GENERALISED TONIC-CLONIC SEIZURE
     Dates: start: 1997, end: 1997
  2. TEGRETOL [Suspect]
     Active Substance: CARBAMAZEPINE
     Indication: GENERALISED TONIC-CLONIC SEIZURE
     Dates: end: 1997

REACTIONS (16)
  - Deafness bilateral [None]
  - Cystitis interstitial [None]
  - Gastrooesophageal reflux disease [None]
  - Hypertension [None]
  - Toxicity to various agents [None]
  - Cystitis [None]
  - Ear infection [None]
  - Thyroid disorder [None]
  - Drug interaction [None]
  - Weight decreased [None]
  - Pharyngitis [None]
  - Tonsillar disorder [None]
  - Cerumen impaction [None]
  - Spinal disorder [None]
  - Confusional state [None]
  - Myocardial infarction [None]

NARRATIVE: CASE EVENT DATE: 1997
